FAERS Safety Report 4380963-3 (Version None)
Quarter: 2004Q2

REPORT INFORMATION
  Report Type: 
  Country: None (occurrence: None)
  Receive Date: 20040614
  Receipt Date: 20040609
  Transmission Date: 20050107
  Serious: No
  Sender: FDA-Public Use
  Company Number: 2004UW11998

PATIENT
  Age: 65 Year
  Sex: Female
  Weight: 87.9978 kg

DRUGS (8)
  1. DIPRIVAN [Suspect]
     Indication: SEDATION
     Dosage: 44 100 ML VIALS
     Dates: start: 20040521, end: 20040530
  2. DIPRIVAN [Suspect]
     Indication: SEDATION
     Dosage: 16 100 ML VIALS
     Dates: start: 20040531, end: 20040603
  3. PROPOFOL [Suspect]
     Indication: SEDATION
     Dates: start: 20040521
  4. DIFLUCAN [Concomitant]
  5. PREDNISONE [Concomitant]
  6. DIGOXIN [Concomitant]
  7. MERREM [Concomitant]
  8. TPN [Concomitant]

REACTIONS (3)
  - BLOOD CREATININE INCREASED [None]
  - ELECTROENCEPHALOGRAM ABNORMAL [None]
  - LOSS OF CONSCIOUSNESS [None]
